FAERS Safety Report 8015695-3 (Version None)
Quarter: 2011Q4

REPORT INFORMATION
  Report Type: 
  Country: None (occurrence: None)
  Receive Date: 20111228
  Receipt Date: 20111228
  Transmission Date: 20120403
  Serious: No
  Sender: FDA-Public Use
  Company Number: None

PATIENT
  Sex: Female

DRUGS (1)
  1. ENBREL [Suspect]
     Indication: PSORIATIC ARTHROPATHY
     Dosage: 50MG QWEEK SQ
     Route: 058
     Dates: start: 20110808, end: 20111223

REACTIONS (5)
  - INJECTION SITE REACTION [None]
  - PALLOR [None]
  - HEADACHE [None]
  - PSORIASIS [None]
  - PRURITUS [None]
